FAERS Safety Report 8271751-6 (Version None)
Quarter: 2012Q2

REPORT INFORMATION
  Report Type: 
  Country: None (occurrence: None)
  Receive Date: 20120410
  Receipt Date: 20120327
  Transmission Date: 20120825
  Serious: Yes (Hospitalization)
  Sender: FDA-Public Use
  Company Number: US-MERCK-1203USA03691

PATIENT
  Sex: Female

DRUGS (1)
  1. ZOLINZA [Suspect]
     Route: 048
     Dates: start: 20120101, end: 20120101

REACTIONS (1)
  - HAEMOLYTIC ANAEMIA [None]
